FAERS Safety Report 8025112-5 (Version None)
Quarter: 2012Q1

REPORT INFORMATION
  Report Type: 
  Country: None (occurrence: None)
  Receive Date: 20120105
  Receipt Date: 20111221
  Transmission Date: 20120608
  Serious: Yes (Hospitalization)
  Sender: FDA-Public Use
  Company Number: DE-CELGENEUS-062-50794-10050789

PATIENT
  Age: 56 Year
  Sex: Male
  Weight: 94.3 kg

DRUGS (6)
  1. VIDAZA [Suspect]
     Dosage: 25.7143 MILLIGRAM
     Route: 058
     Dates: start: 20100421, end: 20100427
  2. LEVOTHYROXINE SODIUM [Concomitant]
     Dosage: 100 MICROGRAM
     Route: 065
  3. VIDAZA [Suspect]
     Route: 041
     Dates: start: 20100517, end: 20100523
  4. VERGENTAN [Concomitant]
     Dosage: 3 DOSAGE FORMS
     Route: 065
  5. METOPROLOL SUCCINATE [Concomitant]
     Dosage: 100 MILLIGRAM
     Route: 065
  6. PANTOPRAZOLE SODIUM [Concomitant]
     Dosage: 40 MILLIGRAM
     Route: 065

REACTIONS (4)
  - INJECTION SITE REACTION [None]
  - GENERAL PHYSICAL HEALTH DETERIORATION [None]
  - CELLULITIS [None]
  - FEBRILE BONE MARROW APLASIA [None]
